FAERS Safety Report 20866963 (Version 2)
Quarter: 2022Q2

REPORT INFORMATION
  Report Type: Spontaneous
  Country: US (occurrence: US)
  Receive Date: 20220524
  Receipt Date: 20220620
  Transmission Date: 20220721
  Serious: Yes (Other)
  Sender: FDA-Public Use
  Company Number: US-R-PHARM US LLC-2022RPM00009

PATIENT
  Age: 63 Year
  Sex: Female
  Weight: 68.934 kg

DRUGS (1)
  1. IXEMPRA [Suspect]
     Active Substance: IXABEPILONE
     Indication: Breast cancer female
     Dosage: 68 MG, (40 MG/M?) EVERY 3 WEEKS
     Route: 041
     Dates: start: 20220311, end: 20220520

REACTIONS (2)
  - Breast cancer female [Not Recovered/Not Resolved]
  - Drug ineffective [Not Recovered/Not Resolved]

NARRATIVE: CASE EVENT DATE: 20220502
